FAERS Safety Report 15210376 (Version 1)
Quarter: 2018Q3

REPORT INFORMATION
  Report Type: Spontaneous
  Country: US (occurrence: US)
  Receive Date: 20180727
  Receipt Date: 20180727
  Transmission Date: 20181010
  Serious: Yes (Other)
  Sender: FDA-Public Use
  Company Number: US-PFIZER INC-2018295330

PATIENT
  Sex: Male

DRUGS (1)
  1. PRIMATENE [Suspect]
     Active Substance: EPHEDRINE HYDROCHLORIDE\GUAIFENESIN
     Dosage: UNK

REACTIONS (3)
  - Asthma [Unknown]
  - Diabetes mellitus [Unknown]
  - Hypertension [Unknown]
